FAERS Safety Report 9724027 (Version 1)
Quarter: 2013Q4

REPORT INFORMATION
  Report Type: Spontaneous
  Country: US (occurrence: US)
  Receive Date: 20131202
  Receipt Date: 20131202
  Transmission Date: 20140711
  Serious: No
  Sender: FDA-Public Use
  Company Number: US-AMGEN-USASP2013078731

PATIENT
  Age: 77 Year
  Sex: Male

DRUGS (11)
  1. ENBREL [Suspect]
     Indication: PSORIASIS
     Dosage: 50 MG, QWK
     Route: 065
  2. AMBIEN [Concomitant]
     Dosage: UNK
  3. ASA [Concomitant]
     Dosage: UNK
  4. LASIX                              /00032601/ [Concomitant]
     Dosage: UNK
  5. NEXIUM                             /01479302/ [Concomitant]
     Dosage: UNK
  6. PERCOCET                           /00446701/ [Concomitant]
     Dosage: UNK
  7. VYTORIN [Concomitant]
     Dosage: UNK
  8. XANAX [Concomitant]
     Dosage: UNK
  9. LIPITOR [Concomitant]
     Dosage: UNK
  10. KLOR CON [Concomitant]
     Dosage: UNK
  11. TESTOSTERONE [Concomitant]
     Dosage: UNK

REACTIONS (2)
  - Mycobacterium tuberculosis complex test positive [Not Recovered/Not Resolved]
  - Platelet count decreased [Unknown]
